FAERS Safety Report 7482695-1 (Version None)
Quarter: 2011Q2

REPORT INFORMATION
  Report Type: 
  Country: None (occurrence: None)
  Receive Date: 20110516
  Receipt Date: 20110505
  Transmission Date: 20111010
  Serious: Yes (Other)
  Sender: FDA-Public Use
  Company Number: AU-JNJFOC-20101202229

PATIENT
  Sex: Female

DRUGS (3)
  1. STELARA [Suspect]
     Route: 058
     Dates: start: 20101101
  2. STELARA [Suspect]
     Route: 058
     Dates: start: 20110223
  3. STELARA [Suspect]
     Indication: PRODUCT USED FOR UNKNOWN INDICATION
     Route: 058
     Dates: start: 20101201

REACTIONS (3)
  - PLATELET COUNT DECREASED [None]
  - PALLOR [None]
  - INCORRECT DOSE ADMINISTERED [None]
